FAERS Safety Report 8875261 (Version 1)
Quarter: 2012Q4

REPORT INFORMATION
  Report Type: 
  Country: US (occurrence: US)
  Receive Date: 20121026
  Receipt Date: 20121026
  Transmission Date: 20130627
  Serious: No
  Sender: FDA-Public Use
  Company Number: US-AMGEN-USASP2012044789

PATIENT
  Age: 65 Year
  Sex: Female
  Weight: 126.98 kg

DRUGS (31)
  1. ENBREL [Suspect]
     Indication: PRODUCT USED FOR UNKNOWN INDICATION
     Dosage: 50 mg/ml, qwk
     Route: 058
  2. FOLBEE [Concomitant]
     Dosage: UNK
  3. SIMVASTATIN [Concomitant]
     Dosage: 10 mg, UNK
  4. ZOLPIDEM [Concomitant]
     Dosage: 5 mg, UNK
  5. TRAMADOL HCL [Concomitant]
     Dosage: 50 mg, UNK
  6. ALDACTONE                          /00006201/ [Concomitant]
     Dosage: 25 mg, UNK
  7. MURO 128                           /00075401/ [Concomitant]
     Dosage: 5 %, UNK
  8. ACTONEL [Concomitant]
     Dosage: 75 mg, UNK
  9. ZANTAC [Concomitant]
     Dosage: 300 mg, UNK
  10. PREDNISONE [Concomitant]
     Dosage: 5 mg, UNK
  11. FISH OIL [Concomitant]
     Dosage: UNK
  12. PATANASE [Concomitant]
     Dosage: 0.6 %, UNK
  13. METHOTREXATE [Concomitant]
     Dosage: 2.5 mg, UNK
  14. LANSOPRAZOLE [Concomitant]
     Dosage: 15 mg, UNK
  15. AVAPRO [Concomitant]
     Dosage: 150 mg, UNK
  16. FUROSEMIDE [Concomitant]
     Dosage: 40 mg, UNK
  17. IMIPRAMIN [Concomitant]
     Dosage: 50 mg, UNK
  18. FLUTICASONE [Concomitant]
     Dosage: 50 mug, UNK
  19. FEXOFENADINE [Concomitant]
     Dosage: 180 mg, UNK
  20. FENOFIBRATE [Concomitant]
     Dosage: 67 mg, UNK
  21. TRUSOPT [Concomitant]
     Dosage: 2 %, UNK
  22. COLACE [Concomitant]
     Dosage: 100 mg, UNK
  23. GLUCOSAMINE AND CHONDROITIN [Concomitant]
     Dosage: UNK
  24. CELEBREX [Concomitant]
     Dosage: 200 mg, UNK
  25. COREG [Concomitant]
     Dosage: 25 mg, UNK
  26. CALCIUM D                          /00944201/ [Concomitant]
     Dosage: UNK
  27. SYMBICORT [Concomitant]
     Dosage: 80-4.5
  28. LUMIGAN [Concomitant]
     Dosage: 0.01 %, UNK
  29. VITAMIN C                          /00008001/ [Concomitant]
     Dosage: 500 mg, UNK
  30. LORTAB                             /00607101/ [Concomitant]
     Dosage: 5 tab
  31. TYLENOL /00020001/ [Concomitant]
     Dosage: 650 mg, UNK

REACTIONS (3)
  - Fall [Unknown]
  - Rib fracture [Unknown]
  - Tooth abscess [Unknown]
